FAERS Safety Report 16568770 (Version 1)
Quarter: 2019Q3

REPORT INFORMATION
  Report Type: Report from Study
  Country: None (occurrence: US)
  Receive Date: 20190713
  Receipt Date: 20190713
  Transmission Date: 20191004
  Serious: Yes (Other)
  Sender: FDA-Public Use
  Company Number: US-ABBVIE-19K-163-2852873-00

PATIENT
  Age: 58 Year
  Sex: Male
  Weight: 117.13 kg

DRUGS (1)
  1. DEPAKOTE [Suspect]
     Active Substance: DIVALPROEX SODIUM
     Indication: EPILEPSY
     Route: 048

REACTIONS (1)
  - Orthopaedic procedure [Recovered/Resolved]

NARRATIVE: CASE EVENT DATE: 201906
